FAERS Safety Report 4469266-6 (Version None)
Quarter: 2004Q4

REPORT INFORMATION
  Report Type: 
  Country: None (occurrence: None)
  Receive Date: 20041008
  Receipt Date: 20030711
  Transmission Date: 20050328
  Serious: No
  Sender: FDA-Public Use
  Company Number: US-BRISTOL-MYERS SQUIBB COMPANY-12324596

PATIENT
  Age: 60 Year
  Sex: Male

DRUGS (6)
  1. AVAPRO [Suspect]
     Route: 048
  2. PLAVIX [Suspect]
     Route: 048
  3. TOPROL-XL [Concomitant]
     Route: 048
  4. SULINDAC [Concomitant]
  5. ALLOPURINOL [Concomitant]
     Route: 048
  6. NORVASC [Concomitant]
     Route: 048

REACTIONS (1)
  - DYSPNOEA [None]
